FAERS Safety Report 6421369-2 (Version None)
Quarter: 2009Q4

REPORT INFORMATION
  Report Type: 
  Country: None (occurrence: None)
  Receive Date: 20091030
  Receipt Date: 20091023
  Transmission Date: 20100525
  Serious: Yes (Hospitalization)
  Sender: FDA-Public Use
  Company Number: PHHY2008JP20993

PATIENT
  Age: 30 Year
  Sex: Female
  Weight: 49 kg

DRUGS (8)
  1. NEORAL [Suspect]
     Indication: APLASTIC ANAEMIA
     Dosage: 300 MG/DAY
     Route: 048
     Dates: start: 20080818, end: 20080827
  2. NEORAL [Suspect]
     Dosage: 200 MG/DAY
     Dates: start: 20080828, end: 20080901
  3. LYMPHOGLOBULINE [Concomitant]
     Indication: APLASTIC ANAEMIA
     Dosage: 750 MG/DAY
  4. SOLU-MEDROL [Concomitant]
     Dosage: UNK
     Dates: start: 20080904
  5. PREDNISOLONE [Concomitant]
     Dosage: UNK
     Dates: start: 20080904
  6. MUCOSTA [Concomitant]
     Route: 048
  7. DIFLUCAN [Concomitant]
  8. BAKTAR [Concomitant]

REACTIONS (17)
  - APHASIA [None]
  - BLOOD BILIRUBIN INCREASED [None]
  - BLOOD LACTATE DEHYDROGENASE INCREASED [None]
  - BLOOD PRESSURE INCREASED [None]
  - BLOOD PRODUCT TRANSFUSION [None]
  - BRAIN OEDEMA [None]
  - CENTRAL NERVOUS SYSTEM LESION [None]
  - CEREBRAL INFARCTION [None]
  - HEADACHE [None]
  - HEMIPLEGIA [None]
  - HYPOAESTHESIA [None]
  - LEUKOENCEPHALOPATHY [None]
  - MUSCULAR WEAKNESS [None]
  - PARALYSIS [None]
  - PLATELET TRANSFUSION [None]
  - PYREXIA [None]
  - SENSORY DISTURBANCE [None]
